FAERS Safety Report 21598699 (Version 7)
Quarter: 2023Q1

REPORT INFORMATION
  Report Type: Report from Study
  Country: US (occurrence: US)
  Receive Date: 20221115
  Receipt Date: 20230303
  Transmission Date: 20230418
  Serious: No
  Sender: FDA-Public Use
  Company Number: US-002147023-NVSC2022US256144

PATIENT
  Sex: Female

DRUGS (1)
  1. COSENTYX [Suspect]
     Active Substance: SECUKINUMAB
     Indication: Psoriatic arthropathy
     Dosage: UNK
     Route: 065

REACTIONS (6)
  - Injection site bruising [Unknown]
  - Injection site haemorrhage [Unknown]
  - Bronchitis [Unknown]
  - Pain [Unknown]
  - Rash macular [Unknown]
  - Drug ineffective [Unknown]
